FAERS Safety Report 25672752 (Version 1)
Quarter: 2025Q3

REPORT INFORMATION
  Report Type: Spontaneous
  Country: US (occurrence: US)
  Receive Date: 20250812
  Receipt Date: 20250812
  Transmission Date: 20251021
  Serious: No
  Sender: SANOFI AVENTIS
  Company Number: US-SA-2025SA236393

PATIENT
  Sex: Female

DRUGS (5)
  1. PLAVIX [Suspect]
     Active Substance: CLOPIDOGREL BISULFATE
     Dates: start: 2019
  2. TNKASE [Concomitant]
     Active Substance: TENECTEPLASE
  3. COUMADIN [Concomitant]
     Active Substance: WARFARIN SODIUM
  4. BUMETANIDE [Concomitant]
     Active Substance: BUMETANIDE
  5. METOPROLOL TARTRATE [Concomitant]
     Active Substance: METOPROLOL TARTRATE

REACTIONS (1)
  - Urticaria [Unknown]

NARRATIVE: CASE EVENT DATE: 20190101
